FAERS Safety Report 17951071 (Version 3)
Quarter: 2020Q3

REPORT INFORMATION
  Report Type: Spontaneous
  Country: US (occurrence: US)
  Receive Date: 20200626
  Receipt Date: 20200722
  Transmission Date: 20201103
  Serious: No
  Sender: FDA-Public Use
  Company Number: US-JNJFOC-20200636837

PATIENT
  Age: 43 Year
  Sex: Male
  Weight: 124.4 kg

DRUGS (4)
  1. GABAPENTIN. [Concomitant]
     Active Substance: GABAPENTIN
     Indication: PRODUCT USED FOR UNKNOWN INDICATION
     Route: 065
  2. DURAGESIC [Suspect]
     Active Substance: FENTANYL
     Indication: PRODUCT USED FOR UNKNOWN INDICATION
     Dosage: 25 MICROGRAM AND 50 MICROGRAM
     Route: 062
  3. METAXALONE. [Concomitant]
     Active Substance: METAXALONE
     Indication: PRODUCT USED FOR UNKNOWN INDICATION
     Route: 065
  4. DURAGESIC [Suspect]
     Active Substance: FENTANYL
     Dosage: 25 MICROGRAM AND 50 MICROGRAM
     Route: 062

REACTIONS (1)
  - Drug ineffective [Unknown]
